FAERS Safety Report 21757358 (Version 2)
Quarter: 2023Q1

REPORT INFORMATION
  Report Type: Report from Study
  Country: BR (occurrence: BR)
  Receive Date: 20221220
  Receipt Date: 20230111
  Transmission Date: 20230418
  Serious: Yes (Other)
  Sender: FDA-Public Use
  Company Number: BR-JNJFOC-20221228614

PATIENT
  Age: 5 Decade
  Sex: Male
  Weight: 79 kg

DRUGS (2)
  1. INFLIXIMAB [Suspect]
     Active Substance: INFLIXIMAB
     Indication: Crohn^s disease
     Dosage: 4 AMPOULES WERE USED, BUT AFTER ABOUT 8 MONTHS WITHOUT HAVING ANY MEDICAL RESULTS CHANGED TO 8 AMPOU
     Route: 041
     Dates: start: 2020, end: 202206
  2. AZATHIOPRINE [Concomitant]
     Active Substance: AZATHIOPRINE

REACTIONS (3)
  - Intestinal stenosis [Unknown]
  - Crohn^s disease [Unknown]
  - Drug ineffective [Unknown]
